FAERS Safety Report 9928378 (Version 6)
Quarter: 2014Q2

REPORT INFORMATION
  Report Type: Spontaneous
  Country: JP (occurrence: JP)
  Receive Date: 20140227
  Receipt Date: 20140616
  Transmission Date: 20141212
  Serious: Yes (Death, Other)
  Sender: FDA-Public Use
  Company Number: JP-PFIZER INC-2014052841

PATIENT
  Age: 76 Year
  Sex: Male
  Weight: 60 kg

DRUGS (11)
  1. VFEND [Suspect]
     Indication: SEPSIS
     Dosage: 400 MG, DAILY
     Route: 048
     Dates: start: 20131112, end: 20131206
  2. VFEND [Suspect]
     Dosage: 200 MG, 2X/DAY
     Route: 048
     Dates: start: 20140121
  3. VFEND [Suspect]
     Indication: SEPSIS
     Dosage: 360 MG, DAILY
     Route: 042
     Dates: start: 20131130, end: 20140120
  4. FAROM [Concomitant]
  5. FUROSEMIDE [Concomitant]
  6. NEXIUM [Concomitant]
  7. MAINTATE [Concomitant]
  8. TAMBOCOR [Concomitant]
  9. LAXOBERON [Concomitant]
  10. SENNOSIDES [Concomitant]
  11. CALONAL [Concomitant]

REACTIONS (3)
  - Myelodysplastic syndrome [Fatal]
  - Disease progression [Fatal]
  - Hypoglycaemia [Recovering/Resolving]
